FAERS Safety Report 6095179-2 (Version None)
Quarter: 2009Q1

REPORT INFORMATION
  Report Type: 
  Country: None (occurrence: None)
  Receive Date: 20090227
  Receipt Date: 20080220
  Transmission Date: 20090719
  Serious: Yes (Other)
  Sender: FDA-Public Use
  Company Number: A0707830A

PATIENT
  Age: 33 Year
  Sex: Female
  Weight: 123.2 kg

DRUGS (1)
  1. LAMICTAL [Suspect]
     Indication: EPILEPSY
     Dosage: 25MG TWICE PER DAY
     Route: 048
     Dates: start: 20071101, end: 20080207

REACTIONS (9)
  - CONVULSION [None]
  - DISORIENTATION [None]
  - GENITAL RASH [None]
  - PARAESTHESIA [None]
  - RASH [None]
  - SOMNOLENCE [None]
  - VAGINAL ERYTHEMA [None]
  - VAGINAL SWELLING [None]
  - VULVOVAGINAL PRURITUS [None]
